FAERS Safety Report 8621678-2 (Version None)
Quarter: 2012Q3

REPORT INFORMATION
  Report Type: 
  Country: None (occurrence: None)
  Receive Date: 20120825
  Receipt Date: 20120807
  Transmission Date: 20120928
  Serious: Yes (Other)
  Sender: FDA-Public Use
  Company Number: JP-009507513-2012SP027863

PATIENT

DRUGS (12)
  1. [THERAPY UNSPECIFIED] [Concomitant]
     Indication: PHARYNGITIS
     Dosage: 2-3 PIECES/DAY
     Dates: start: 20120524, end: 20120531
  2. PEGINTERFERON ALFA-2B [Suspect]
     Dosage: 1.5 MICROGRAM PER KILOGRAM, QW
     Route: 058
     Dates: start: 20120614
  3. REBETOL [Suspect]
     Indication: HEPATITIS C
     Dosage: 400 MG, QD
     Route: 048
     Dates: start: 20120315, end: 20120501
  4. TELAVIC [Suspect]
     Indication: HEPATITIS C
     Dosage: 1500 MG, QD
     Route: 048
     Dates: start: 20120315, end: 20120523
  5. PURSENNID (SENNOSIDES) [Concomitant]
     Indication: CONSTIPATION
     Dosage: 24 MG, QD
     Route: 048
     Dates: start: 20120319, end: 20120321
  6. CONFATANIN [Concomitant]
     Indication: PYREXIA
     Dosage: 60 MG/DAY AS NEEDED
     Route: 065
     Dates: start: 20120316
  7. CLOBETASOL PROPIONATE [Concomitant]
     Indication: RASH
     Dosage: TWICE TO THRICE A DAY
     Route: 065
     Dates: start: 20120322, end: 20120329
  8. HUSTAZOL (CLOPERASTINE HYDROCHLORIDE) [Concomitant]
     Indication: UPPER RESPIRATORY TRACT INFLAMMATION
     Dosage: UPDATE (29JUN2012):
     Route: 048
     Dates: start: 20120524, end: 20120613
  9. PEGINTERFERON ALFA-2B [Suspect]
     Indication: HEPATITIS C
     Dosage: 1.5 MICROGRAM PER KILOGRAM, QW
     Route: 058
     Dates: start: 20120315, end: 20120531
  10. REBETOL [Suspect]
     Dosage: 200 MG, QD
     Route: 048
     Dates: start: 20120502, end: 20120606
  11. TELAVIC [Suspect]
     Dosage: 750 MG, QD
     Route: 048
     Dates: start: 20120524, end: 20120607
  12. REBETOL [Suspect]
     Dosage: 200 MG, QD
     Route: 048
     Dates: start: 20120614

REACTIONS (2)
  - PANCYTOPENIA [None]
  - BLOOD URIC ACID INCREASED [None]
